FAERS Safety Report 5763033-9 (Version None)
Quarter: 2008Q2

REPORT INFORMATION
  Report Type: 
  Country: None (occurrence: None)
  Receive Date: 20080609
  Receipt Date: 20080526
  Transmission Date: 20081010
  Serious: Yes (Other)
  Sender: FDA-Public Use
  Company Number: FR-ELI_LILLY_AND_COMPANY-FR200805006081

PATIENT
  Age: 75 Year
  Sex: Male

DRUGS (2)
  1. HUMALOG MIX 75/25 [Suspect]
     Indication: INSULIN-REQUIRING TYPE 2 DIABETES MELLITUS
     Route: 058
     Dates: start: 20080501, end: 20080501
  2. OXYGEN [Concomitant]
     Indication: CARDIAC FAILURE
     Dosage: UNK, AS NEEDED

REACTIONS (1)
  - ACUTE RESPIRATORY FAILURE [None]
